FAERS Safety Report 9725476 (Version 1)
Quarter: 2013Q4

REPORT INFORMATION
  Report Type: Spontaneous
  Country: US (occurrence: None)
  Receive Date: 20131202
  Receipt Date: 20131202
  Transmission Date: 20140711
  Serious: Yes (Hospitalization)
  Sender: FDA-Public Use
  Company Number: None

PATIENT
  Age: 37 Year
  Sex: Female
  Weight: 62.6 kg

DRUGS (1)
  1. METOCLOPRAMIDE 10 MG [Suspect]
     Indication: NAUSEA
     Dosage: 10 MG ?INTO A VEIN
     Dates: start: 20131128, end: 20131128

REACTIONS (11)
  - Presyncope [None]
  - Dyspnoea [None]
  - Palpitations [None]
  - Panic reaction [None]
  - Dry mouth [None]
  - Dry throat [None]
  - Tremor [None]
  - Dyskinesia [None]
  - Neck pain [None]
  - Musculoskeletal stiffness [None]
  - Diarrhoea [None]
